FAERS Safety Report 7901285-7 (Version None)
Quarter: 2011Q4

REPORT INFORMATION
  Report Type: 
  Country: None (occurrence: None)
  Receive Date: 20111108
  Receipt Date: 20111101
  Transmission Date: 20120403
  Serious: Yes (Death)
  Sender: FDA-Public Use
  Company Number: PHHO2011TR18170

PATIENT
  Sex: Female
  Weight: 55 kg

DRUGS (1)
  1. EVEROLIMUS [Suspect]
     Indication: METASTATIC RENAL CELL CARCINOMA
     Dosage: 10 MG, BID
     Route: 048
     Dates: start: 20110901, end: 20111001

REACTIONS (1)
  - PNEUMONIA [None]
